FAERS Safety Report 16729241 (Version 1)
Quarter: 2019Q4

REPORT INFORMATION
  Report Type: Spontaneous
  Country: US (occurrence: US)
  Receive Date: 20190821
  Receipt Date: 20190821
  Transmission Date: 20200122
  Serious: Yes (Hospitalization)
  Sender: FDA-Public Use
  Company Number: None

PATIENT
  Age: 45 Year
  Sex: Female
  Weight: 112.5 kg

DRUGS (4)
  1. TOPOMATE [Concomitant]
  2. ZOLOFT [Concomitant]
     Active Substance: SERTRALINE HYDROCHLORIDE
  3. RISPODAL [Concomitant]
  4. DUPIXENT [Suspect]
     Active Substance: DUPILUMAB
     Indication: ASTHMA
     Dosage: ?          QUANTITY:1 INJECTION(S);OTHER FREQUENCY:EVERY 2 WEEKS;?
     Route: 058
     Dates: start: 20190719

REACTIONS (6)
  - Upper respiratory tract infection [None]
  - Pharyngeal swelling [None]
  - Dyspnoea [None]
  - Skin depigmentation [None]
  - Dizziness [None]
  - Pharyngeal erythema [None]

NARRATIVE: CASE EVENT DATE: 20190814
